FAERS Safety Report 8295291-3 (Version None)
Quarter: 2012Q2

REPORT INFORMATION
  Report Type: 
  Country: None (occurrence: None)
  Receive Date: 20120416
  Receipt Date: 20120402
  Transmission Date: 20120825
  Serious: Yes (Other)
  Sender: FDA-Public Use
  Company Number: 2125337-2012-00001

PATIENT
  Sex: Male

DRUGS (1)
  1. MICONAZOLE NITRATE [Suspect]
     Indication: TINEA CRURIS
     Dosage: TOPICAL
     Route: 061

REACTIONS (4)
  - PUPILS UNEQUAL [None]
  - OCULAR HYPERAEMIA [None]
  - EYELID PTOSIS [None]
  - ACCIDENTAL EXPOSURE [None]
